FAERS Safety Report 6713969-7 (Version None)
Quarter: 2010Q2

REPORT INFORMATION
  Report Type: 
  Country: None (occurrence: None)
  Receive Date: 20100506
  Receipt Date: 20100430
  Transmission Date: 20101027
  Serious: Yes (Other)
  Sender: FDA-Public Use
  Company Number: FR-EISAI INC.-E2020-05838-SPO-FR

PATIENT
  Age: 80 Year
  Sex: Female
  Weight: 55 kg

DRUGS (10)
  1. ARICEPT [Suspect]
     Route: 048
     Dates: start: 20091223, end: 20091227
  2. ARICEPT [Suspect]
     Route: 048
     Dates: start: 20100101, end: 20100101
  3. ARICEPT [Suspect]
     Route: 048
     Dates: start: 20100101
  4. SINEMET [Concomitant]
     Indication: PARKINSON'S DISEASE
     Route: 048
     Dates: start: 20080101, end: 20100424
  5. MOTILIUM [Concomitant]
     Indication: NAUSEA
     Route: 048
     Dates: start: 20080101, end: 20100101
  6. MOTILIUM [Concomitant]
     Indication: VOMITING
  7. MOVICOL [Concomitant]
     Dosage: UNKNOWN
     Route: 048
  8. ZOLOFT [Concomitant]
     Indication: DEPRESSION
     Route: 048
     Dates: start: 20100110
  9. PHYTOTHERAPY (OLIVE TREE) [Concomitant]
     Route: 048
     Dates: start: 20080101
  10. ORACAL D 3 [Concomitant]
     Indication: OSTEOPOROSIS
     Route: 048
     Dates: start: 20050101

REACTIONS (6)
  - ABDOMINAL PAIN [None]
  - DIARRHOEA [None]
  - GASTROINTESTINAL HYPERMOTILITY [None]
  - HEADACHE [None]
  - NAUSEA [None]
  - SOMNOLENCE [None]
